FAERS Safety Report 7356725-1 (Version None)
Quarter: 2011Q1

REPORT INFORMATION
  Report Type: 
  Country: None (occurrence: None)
  Receive Date: 20110316
  Receipt Date: 20110310
  Transmission Date: 20110831
  Serious: Yes (Hospitalization)
  Sender: FDA-Public Use
  Company Number: IE-GILEAD-IE-CVT-100551

PATIENT
  Age: 75 Year
  Sex: Male

DRUGS (22)
  1. AMLODIPINE [Concomitant]
  2. IRON [Concomitant]
  3. LEXOTAN [Concomitant]
  4. PROTIUM [Concomitant]
  5. MACUSHIELD [Concomitant]
  6. EQUANIL [Concomitant]
  7. OMACOR [Concomitant]
  8. MOTILIUM                           /00498201/ [Concomitant]
  9. CRESTOR [Concomitant]
  10. PONSTAN [Concomitant]
  11. TRAVATAN [Concomitant]
  12. BETOPTIC [Concomitant]
  13. LACRI-LUBE [Concomitant]
  14. RANEXA [Suspect]
     Indication: ANGINA PECTORIS
     Route: 048
     Dates: start: 20100614
  15. BISOPROLOL FUMARATE [Concomitant]
  16. OMNIGEL [Concomitant]
  17. FUROSEMIDE                         /00032601/ [Concomitant]
  18. METARAMINOL BITARTRATE [Concomitant]
  19. ELANTAN [Concomitant]
  20. ATACAND [Concomitant]
  21. ASPIRIN [Concomitant]
  22. NORTEN [Concomitant]

REACTIONS (1)
  - CHEST PAIN [None]
